FAERS Safety Report 16687399 (Version 2)
Quarter: 2019Q4

REPORT INFORMATION
  Report Type: Spontaneous
  Country: US (occurrence: US)
  Receive Date: 20190809
  Receipt Date: 20191203
  Transmission Date: 20200122
  Serious: Yes (Hospitalization, Other)
  Sender: FDA-Public Use
  Company Number: US-BAYER-2019-147302

PATIENT
  Age: 38 Year
  Sex: Female
  Weight: 99.77 kg

DRUGS (4)
  1. ELIQUIS [Concomitant]
     Active Substance: APIXABAN
     Dosage: UNK
  2. ADEMPAS [Suspect]
     Active Substance: RIOCIGUAT
     Indication: PULMONARY ARTERIAL HYPERTENSION
     Dosage: 1.5 MG, TID
     Route: 048
  3. ORENITRAM [Concomitant]
     Active Substance: TREPROSTINIL
     Dosage: 0.25 MG. TID
     Route: 048
  4. ORENITRAM [Concomitant]
     Active Substance: TREPROSTINIL
     Dosage: 2.5 MG, TID
     Route: 048
     Dates: start: 20190801

REACTIONS (2)
  - Fluid overload [Recovered/Resolved]
  - Cardiac failure acute [None]
